FAERS Safety Report 4365997-7 (Version None)
Quarter: 2004Q2

REPORT INFORMATION
  Report Type: 
  Country: None (occurrence: None)
  Receive Date: 20040520
  Receipt Date: 20040507
  Transmission Date: 20050107
  Serious: Yes (Hospitalization)
  Sender: FDA-Public Use
  Company Number: 2004211527JP

PATIENT
  Age: 55 Year
  Sex: Male
  Weight: 50 kg

DRUGS (3)
  1. MEDROL [Suspect]
     Indication: KIDNEY TRANSPLANT REJECTION
     Dosage: 8 MG, QD, ORAL
     Route: 048
     Dates: start: 19970301
  2. CYCLOSPORINE [Suspect]
     Dosage: 140 MG, QD
  3. MYCOPHENOLATE MOFETIL (MYCOPHENOLATE  MOFETIL) [Suspect]
     Dosage: 1.5 MG QD

REACTIONS (3)
  - RENAL ATROPHY [None]
  - RENAL CELL CARCINOMA STAGE UNSPECIFIED [None]
  - RENAL CYST [None]
